FAERS Safety Report 16065119 (Version 1)
Quarter: 2019Q1

REPORT INFORMATION
  Report Type: Spontaneous
  Country: DE (occurrence: DE)
  Receive Date: 20190313
  Receipt Date: 20190313
  Transmission Date: 20190418
  Serious: Yes (Other)
  Sender: FDA-Public Use
  Company Number: DE-AUROBINDO-AUR-APL-2019-012399

PATIENT

DRUGS (4)
  1. LUMINAL [Interacting]
     Active Substance: PHENOBARBITAL SODIUM
     Indication: EPILEPSY
     Dosage: UNK
     Route: 065
  2. CEFPODOXIME FILM-COATED TABLETS [Suspect]
     Active Substance: CEFPODOXIME
     Indication: PYREXIA
     Dosage: UNK
     Route: 065
  3. CEFPODOXIME FILM-COATED TABLETS [Interacting]
     Active Substance: CEFPODOXIME
     Indication: NASOPHARYNGITIS
     Dosage: 2 DOSAGE FORM, DAILY
     Route: 065
  4. CARBADURA [Interacting]
     Active Substance: CARBAMAZEPINE
     Indication: EPILEPSY
     Dosage: UNK
     Route: 065

REACTIONS (5)
  - Cerebrovascular accident [Unknown]
  - Drug interaction [Unknown]
  - Speech disorder [Unknown]
  - Musculoskeletal stiffness [Unknown]
  - Balance disorder [Unknown]
